FAERS Safety Report 23653577 (Version 1)
Quarter: 2024Q1

REPORT INFORMATION
  Report Type: Spontaneous
  Country: GB (occurrence: GB)
  Receive Date: 20240320
  Receipt Date: 20240320
  Transmission Date: 20240410
  Serious: Yes (Life-Threatening, Hospitalization, Disabling, Other)
  Sender: FDA-Public Use
  Company Number: GB-MHRA-MED-202309051157322890-FPJCT

PATIENT
  Age: 89 Year
  Sex: Female
  Weight: 55 kg

DRUGS (15)
  1. DULCOLAX STOOL SOFTENER [Suspect]
     Active Substance: DOCUSATE SODIUM
     Indication: Constipation
     Dosage: 20ML TAKEN ONCE OR TWICE DAILY; ;
     Dates: start: 20230903, end: 20230905
  2. CARBOHYDRATES\FATTY ACIDS\MINERALS\PROTEIN\VITAMINS [Concomitant]
     Active Substance: CARBOHYDRATES\FATTY ACIDS\MINERALS\PROTEIN\VITAMINS
     Indication: Nutritional supplementation
     Dates: start: 20230815
  3. GELCLAIR [Concomitant]
     Indication: Mucosal inflammation
     Dates: start: 20230815
  4. BISOPROLOL [Concomitant]
     Active Substance: BISOPROLOL\BISOPROLOL FUMARATE
     Indication: Atrial fibrillation
     Dates: start: 20180516
  5. BUMETANIDE [Concomitant]
     Active Substance: BUMETANIDE
     Indication: Cardiac failure
     Dates: start: 20181126
  6. DIGOXIN [Concomitant]
     Active Substance: DIGOXIN
     Indication: Atrial fibrillation
     Dates: start: 20230829
  7. EDOXABAN [Concomitant]
     Active Substance: EDOXABAN
     Indication: Atrial fibrillation
     Dates: start: 20170208
  8. FLUCONAZOLE [Concomitant]
     Active Substance: FLUCONAZOLE
     Indication: Candida infection
     Dates: start: 20230822, end: 20230829
  9. GABAPENTIN [Concomitant]
     Active Substance: GABAPENTIN
     Indication: Neuralgia
     Dates: start: 20230822
  10. OMEPRAZOLE [Concomitant]
     Active Substance: OMEPRAZOLE
     Indication: Gastrooesophageal reflux disease
     Dates: start: 20121129
  11. ONDANSETRON [Concomitant]
     Active Substance: ONDANSETRON
     Indication: Nausea
     Dates: start: 20230901
  12. OXYCODONE [Concomitant]
     Active Substance: OXYCODONE\OXYCODONE HYDROCHLORIDE
     Indication: Pain
     Dates: start: 20230725
  13. PROCHLORPERAZINE [Concomitant]
     Active Substance: PROCHLORPERAZINE
     Indication: Nausea
     Dates: start: 20220527, end: 20230901
  14. SPIRONOLACTONE [Concomitant]
     Active Substance: SPIRONOLACTONE
     Indication: Cardiac failure
     Dates: start: 20181126
  15. VITAMIN D SUBSTANCES [Concomitant]
     Indication: Bone disorder
     Dates: start: 20211201

REACTIONS (1)
  - Anaphylactic shock [Not Recovered/Not Resolved]

NARRATIVE: CASE EVENT DATE: 20230903
